FAERS Safety Report 6695414-3 (Version None)
Quarter: 2010Q2

REPORT INFORMATION
  Report Type: 
  Country: None (occurrence: None)
  Receive Date: 20100424
  Receipt Date: 20100413
  Transmission Date: 20101027
  Serious: Yes (Other)
  Sender: FDA-Public Use
  Company Number: US-ELI_LILLY_AND_COMPANY-USA020312266

PATIENT
  Sex: Male

DRUGS (7)
  1. PROZAC [Suspect]
     Indication: DEPRESSION
     Dosage: 1 D/F, UNK
  2. PROZAC [Suspect]
     Dosage: 10 MG, UNKNOWN
     Route: 048
     Dates: start: 19960408, end: 19960423
  3. PROZAC [Suspect]
     Dosage: 40 MG, DAILY (1/D)
     Route: 048
     Dates: start: 20080101
  4. LITHIUM CARBONATE [Concomitant]
     Dosage: 600 MG, 2/D
  5. ALUPENT [Concomitant]
     Dosage: UNK, AS NEEDED
  6. MOTRIN [Concomitant]
     Dosage: 200 MG, 2/D
     Route: 048
  7. PROVENTIL /00139501/ [Concomitant]
     Indication: ASTHMA

REACTIONS (11)
  - AGGRESSION [None]
  - AGITATION [None]
  - ANTIDEPRESSANT DRUG LEVEL ABOVE THERAPEUTIC [None]
  - DRUG TOXICITY [None]
  - DRUG WITHDRAWAL SYNDROME [None]
  - HOMICIDE [None]
  - HOSTILITY [None]
  - IRRITABILITY [None]
  - PARANOIA [None]
  - SUICIDAL BEHAVIOUR [None]
  - THINKING ABNORMAL [None]
